FAERS Safety Report 10797717 (Version 2)
Quarter: 2015Q1

REPORT INFORMATION
  Report Type: Spontaneous
  Country: US (occurrence: US)
  Receive Date: 20150216
  Receipt Date: 20150327
  Transmission Date: 20150721
  Serious: No
  Sender: FDA-Public Use
  Company Number: US-PFIZER INC-2015053389

PATIENT
  Age: 58 Year
  Sex: Male
  Weight: 63 kg

DRUGS (4)
  1. SPIRONOLACTONE. [Suspect]
     Active Substance: SPIRONOLACTONE
     Indication: PERIPHERAL SWELLING
  2. SPIRONOLACTONE. [Suspect]
     Active Substance: SPIRONOLACTONE
     Indication: DYSPNOEA
  3. SPIRONOLACTONE. [Suspect]
     Active Substance: SPIRONOLACTONE
     Indication: CARDIAC FAILURE CONGESTIVE
     Dosage: 25 MG, 1X/DAY
     Dates: start: 2011, end: 2013
  4. SPIRONOLACTONE. [Suspect]
     Active Substance: SPIRONOLACTONE
     Indication: ABDOMINAL DISTENSION

REACTIONS (1)
  - Gynaecomastia [Recovered/Resolved]

NARRATIVE: CASE EVENT DATE: 2013
